FAERS Safety Report 23465934 (Version 1)
Quarter: 2024Q1

REPORT INFORMATION
  Report Type: Report from Study
  Country: US (occurrence: US)
  Receive Date: 20240201
  Receipt Date: 20240201
  Transmission Date: 20240410
  Serious: Yes (Hospitalization)
  Sender: FDA-Public Use
  Company Number: US-ABBVIE-5611317

PATIENT
  Sex: Male

DRUGS (2)
  1. DUOPA [Suspect]
     Active Substance: CARBIDOPA\LEVODOPA
     Indication: Parkinson^s disease
     Dosage: MD: 14.9ML, CD: 2.1ML/HR, ED:  1ML AS NEEDED EVERY 75 MINS, START AT 8AM, FINISH AT 8PM.
     Route: 050
     Dates: start: 202112
  2. DUOPA [Suspect]
     Active Substance: CARBIDOPA\LEVODOPA
     Dosage: 1 CASSETTE UP TO 16 HOURS EACH DAY
     Route: 050
     Dates: start: 20220124

REACTIONS (1)
  - Cough [Unknown]
